FAERS Safety Report 7875401-X (Version None)
Quarter: 2011Q4

REPORT INFORMATION
  Report Type: 
  Country: None (occurrence: None)
  Receive Date: 20111031
  Receipt Date: 20111019
  Transmission Date: 20120403
  Serious: Yes (Hospitalization, Other)
  Sender: FDA-Public Use
  Company Number: PHHY2011FR93427

PATIENT
  Sex: Female

DRUGS (9)
  1. MOTILIUM [Concomitant]
     Dates: start: 20110615, end: 20110619
  2. RITUXIMAB [Suspect]
     Indication: NEUROMYELITIS OPTICA
     Dates: start: 20110526
  3. LEVOTHYROXINE SODIUM [Concomitant]
  4. LOVENOX [Concomitant]
  5. RITUXIMAB [Suspect]
     Dates: start: 20110601
  6. TEGRETOL [Suspect]
     Dates: start: 20110429, end: 20110625
  7. RITUXIMAB [Suspect]
     Dates: start: 20110609
  8. RITUXIMAB [Suspect]
     Dates: start: 20110616
  9. SOLU-MEDROL [Concomitant]

REACTIONS (3)
  - EOSINOPHILIA [None]
  - NEUROMYELITIS OPTICA [None]
  - RASH MACULO-PAPULAR [None]
